FAERS Safety Report 19179312 (Version 1)
Quarter: 2021Q2

REPORT INFORMATION
  Report Type: Spontaneous
  Country: US (occurrence: US)
  Receive Date: 20210426
  Receipt Date: 20210426
  Transmission Date: 20210717
  Serious: No
  Sender: FDA-Public Use
  Company Number: US-SA-2021SA127035

PATIENT
  Age: 66 Year
  Sex: Female

DRUGS (1)
  1. LANTUS SOLOSTAR [Suspect]
     Active Substance: INSULIN GLARGINE
     Indication: TYPE 2 DIABETES MELLITUS
     Dosage: 13 UNITS ONCE DAILY
     Route: 065
     Dates: start: 202103

REACTIONS (4)
  - Malaise [Unknown]
  - Nervousness [Unknown]
  - Tremor [Unknown]
  - Feeling abnormal [Unknown]
